FAERS Safety Report 6834500-1 (Version None)
Quarter: 2010Q3

REPORT INFORMATION
  Report Type: 
  Country: None (occurrence: None)
  Receive Date: 20100712
  Receipt Date: 20070710
  Transmission Date: 20110219
  Serious: Yes (Other)
  Sender: FDA-Public Use
  Company Number: US-PFIZER INC-2007026157

PATIENT
  Sex: Female

DRUGS (3)
  1. CHANTIX [Suspect]
     Indication: SMOKING CESSATION THERAPY
     Dosage: DAILY
     Route: 048
     Dates: start: 20070313, end: 20070406
  2. CHANTIX [Suspect]
     Indication: NICOTINE DEPENDENCE
  3. BENICAR [Concomitant]

REACTIONS (1)
  - ARTHRALGIA [None]
